FAERS Safety Report 6903552-2 (Version None)
Quarter: 2010Q3

REPORT INFORMATION
  Report Type: 
  Country: None (occurrence: None)
  Receive Date: 20100708
  Receipt Date: 20100216
  Transmission Date: 20110219
  Serious: Yes (Other)
  Sender: FDA-Public Use
  Company Number: 2010020970

PATIENT
  Age: 58 Year
  Sex: Female
  Weight: 67.1 kg

DRUGS (1)
  1. CHANTIX [Suspect]
     Indication: SMOKING CESSATION THERAPY
     Dosage: 1 MG, 2X/DAY, ORAL
     Route: 048
     Dates: start: 20100208, end: 20100215

REACTIONS (1)
  - DEPRESSION [None]
